FAERS Safety Report 13273909 (Version 2)
Quarter: 2017Q1

REPORT INFORMATION
  Report Type: Spontaneous
  Country: US (occurrence: US)
  Receive Date: 20170227
  Receipt Date: 20170320
  Transmission Date: 20170428
  Serious: Yes (Death)
  Sender: FDA-Public Use
  Company Number: US-JNJFOC-20170224983

PATIENT
  Sex: Female

DRUGS (1)
  1. REMICADE [Suspect]
     Active Substance: INFLIXIMAB
     Indication: PRODUCT USED FOR UNKNOWN INDICATION
     Route: 042

REACTIONS (6)
  - Plasma cell myeloma [Unknown]
  - Potentiating drug interaction [Unknown]
  - Blood pressure abnormal [Unknown]
  - Blood glucose fluctuation [Unknown]
  - Death [Fatal]
  - Drug ineffective [Unknown]
